FAERS Safety Report 22279282 (Version 8)
Quarter: 2024Q1

REPORT INFORMATION
  Report Type: Spontaneous
  Country: IN (occurrence: IN)
  Receive Date: 20230503
  Receipt Date: 20240301
  Transmission Date: 20240410
  Serious: Yes (Other)
  Sender: FDA-Public Use
  Company Number: IN-PFIZER INC-202200746971

PATIENT
  Age: 53 Year
  Sex: Female
  Weight: 53 kg

DRUGS (5)
  1. PALBOCICLIB [Suspect]
     Active Substance: PALBOCICLIB
     Indication: Breast cancer metastatic
     Dosage: PER DAY FOR 21 DAYS IN A MONTH 7 DAYS OFF
     Dates: start: 202106, end: 202202
  2. PALBOCICLIB [Suspect]
     Active Substance: PALBOCICLIB
     Dosage: 125 MG, 1X/DAY
     Route: 048
     Dates: start: 20210622, end: 20220502
  3. PALBOCICLIB [Suspect]
     Active Substance: PALBOCICLIB
     Dosage: PER DAY FOR 21 DAYS IN A MONTH 7 DAYS OFF
     Route: 048
     Dates: start: 202203
  4. PALBOCICLIB [Suspect]
     Active Substance: PALBOCICLIB
     Dosage: 125 MG, 1X/DAY
     Route: 048
     Dates: start: 20220506
  5. LETROZOLE [Concomitant]
     Active Substance: LETROZOLE
     Dosage: PER DAY FOR 21 DAYS IN A MONTH
     Dates: start: 202206

REACTIONS (9)
  - Pericardial effusion [Unknown]
  - Pyrexia [Unknown]
  - Lymphadenopathy [Unknown]
  - Lung opacity [Unknown]
  - Lymphadenitis [Unknown]
  - Hepatic lesion [Unknown]
  - Osteosclerosis [Unknown]
  - Neoplasm progression [Unknown]
  - Gastrointestinal disorder [Unknown]
